FAERS Safety Report 10733915 (Version 15)
Quarter: 2019Q1

REPORT INFORMATION
  Report Type: Report from Study
  Country: US (occurrence: US)
  Receive Date: 20150123
  Receipt Date: 20190121
  Transmission Date: 20190417
  Serious: Yes (Hospitalization, Other)
  Sender: FDA-Public Use
  Company Number: US-SA-2014SA064910

PATIENT
  Age: 75 Year
  Sex: Female

DRUGS (9)
  1. TERIFLUNOMIDE. [Suspect]
     Active Substance: TERIFLUNOMIDE
     Indication: MULTIPLE SCLEROSIS
     Dosage: 14 MG,QD
     Route: 048
     Dates: start: 20140430
  2. TERIFLUNOMIDE. [Suspect]
     Active Substance: TERIFLUNOMIDE
     Dosage: 14 MG,QD
     Route: 048
     Dates: start: 20140521, end: 20160208
  3. MEFENAMIC ACID. [Concomitant]
     Active Substance: MEFENAMIC ACID
     Dosage: UNK
  4. BACLOFEN. [Concomitant]
     Active Substance: BACLOFEN
     Dosage: UNK
  5. PARACETAMOL [Concomitant]
     Active Substance: ACETAMINOPHEN
     Dosage: UNK
  6. TRAMADOL. [Concomitant]
     Active Substance: TRAMADOL
     Dosage: UNK
  7. TERIFLUNOMIDE. [Suspect]
     Active Substance: TERIFLUNOMIDE
     Dosage: 14 MG,QD
     Route: 048
  8. NITROGLYCERINE [Concomitant]
     Active Substance: NITROGLYCERIN
     Indication: PAIN IN EXTREMITY
     Dosage: UNK UNK,UNK
  9. NEURONTIN [Concomitant]
     Active Substance: GABAPENTIN
     Dosage: UNK

REACTIONS (33)
  - Chest discomfort [Unknown]
  - Urinary retention [Unknown]
  - Diabetes mellitus [Not Recovered/Not Resolved]
  - Urinary tract infection [Unknown]
  - Emotional disorder [Unknown]
  - Anxiety [Unknown]
  - Sleep apnoea syndrome [Not Recovered/Not Resolved]
  - Diplopia [Not Recovered/Not Resolved]
  - Head injury [Unknown]
  - Limb injury [Unknown]
  - Contusion [Unknown]
  - Muscle spasms [Not Recovered/Not Resolved]
  - Chest pain [Unknown]
  - Muscle spasms [Recovering/Resolving]
  - Angina pectoris [Recovered/Resolved]
  - Product dose omission [Unknown]
  - Intervertebral disc protrusion [Unknown]
  - Vascular stent occlusion [Recovered/Resolved]
  - Mental impairment [Unknown]
  - Gait disturbance [Unknown]
  - Fall [Unknown]
  - Muscular weakness [Unknown]
  - Sinusitis [Not Recovered/Not Resolved]
  - Myocardial infarction [Unknown]
  - Pain in extremity [Unknown]
  - Fatigue [Unknown]
  - Diarrhoea [Recovered/Resolved]
  - Condition aggravated [Not Recovered/Not Resolved]
  - Micturition urgency [Unknown]
  - Chest pain [Unknown]
  - Asthenia [Unknown]
  - Pain in extremity [Not Recovered/Not Resolved]
  - Blood glucose increased [Not Recovered/Not Resolved]

NARRATIVE: CASE EVENT DATE: 2014
